FAERS Safety Report 21289790 (Version 3)
Quarter: 2023Q1

REPORT INFORMATION
  Report Type: Report from Study
  Country: DE (occurrence: DE)
  Receive Date: 20220902
  Receipt Date: 20230217
  Transmission Date: 20230418
  Serious: Yes (Other)
  Sender: FDA-Public Use
  Company Number: DE-UKU-20220260

PATIENT
  Age: 51 Year
  Sex: Male
  Weight: 75 kg

DRUGS (3)
  1. COPANLISIB [Suspect]
     Active Substance: COPANLISIB
     Indication: Marginal zone lymphoma
     Dosage: 60 MG, CYCLICAL ON D1, D8 AND D15
     Route: 042
     Dates: start: 20220620
  2. COPANLISIB [Suspect]
     Active Substance: COPANLISIB
     Indication: Marginal zone lymphoma
     Dosage: 60 MG, CYCLICAL ON D1, D8 AND D15
     Route: 042
     Dates: start: 20220816
  3. RITUXIMAB [Suspect]
     Active Substance: RITUXIMAB
     Indication: Marginal zone lymphoma
     Dosage: 375 MG/M2 ON DAY1 OF EACH CYCLE
     Route: 042
     Dates: start: 20220620, end: 20220718

REACTIONS (4)
  - Sinus bradycardia [Recovered/Resolved]
  - Epilepsy [Recovered/Resolved]
  - Syncope [Recovered/Resolved]
  - Hypertension [Recovered/Resolved]

NARRATIVE: CASE EVENT DATE: 20220816
